FAERS Safety Report 6836899-9 (Version None)
Quarter: 2010Q3

REPORT INFORMATION
  Report Type: 
  Country: None (occurrence: None)
  Receive Date: 20100713
  Receipt Date: 20070501
  Transmission Date: 20110219
  Serious: No
  Sender: FDA-Public Use
  Company Number: US-PFIZER INC-2007035849

PATIENT
  Sex: Male
  Weight: 84.09 kg

DRUGS (2)
  1. CHANTIX [Suspect]
     Indication: SMOKING CESSATION THERAPY
     Dates: start: 20070429
  2. XANAX [Suspect]
     Indication: ANXIETY

REACTIONS (3)
  - ANXIETY [None]
  - INSOMNIA [None]
  - PALPITATIONS [None]
